FAERS Safety Report 7549798-4 (Version None)
Quarter: 2011Q2

REPORT INFORMATION
  Report Type: 
  Country: None (occurrence: None)
  Receive Date: 20110615
  Receipt Date: 20110601
  Transmission Date: 20111010
  Serious: Yes (Hospitalization)
  Sender: FDA-Public Use
  Company Number: US-CELGENEUS-ABX40-09-0281

PATIENT
  Sex: Female

DRUGS (13)
  1. ESZOPICLONE [Concomitant]
     Dates: start: 20061120
  2. ADRIAMYCIN PFS [Suspect]
     Indication: BREAST CANCER
     Dosage: 60 MILLIGRAM/SQ. METER
     Route: 051
  3. MULTI-VITAMINS [Concomitant]
     Dates: start: 20060727
  4. BEVACIZUMAB [Suspect]
     Indication: BREAST CANCER
     Dosage: 10 MILLIGRAM/SQ. METER
     Route: 051
     Dates: end: 20061120
  5. ESOMEPRAZOLE MAGNESIUM [Concomitant]
     Dates: start: 20061115
  6. SERTRALINE HYDROCHLORIDE [Concomitant]
     Dates: start: 20060727
  7. GRANISETRON [Concomitant]
     Dates: start: 20061107
  8. ALENDRONATE SODIUM [Concomitant]
     Dates: start: 20061107
  9. ABRAXANE [Suspect]
     Indication: BREAST CANCER
     Dosage: 260 MILLIGRAM/SQ. METER
     Route: 051
  10. CYCLOPHOSPHAMIDE [Suspect]
     Indication: BREAST CANCER
     Dosage: 600 MILLIGRAM/SQ. METER
     Route: 051
  11. ACETAMINOPHEN [Concomitant]
     Dates: start: 20061107
  12. CALCIUM SUPPLEMENTS [Concomitant]
     Dates: start: 20060727
  13. PEGFILGRASTIM [Concomitant]
     Dosage: 6 MILLIGRAM
     Route: 058

REACTIONS (1)
  - WOUND COMPLICATION [None]
